FAERS Safety Report 9137057 (Version 1)
Quarter: 2013Q1

REPORT INFORMATION
  Report Type: Spontaneous
  Country: US (occurrence: US)
  Receive Date: 20130219
  Receipt Date: 20130219
  Transmission Date: 20140127
  Serious: Yes (Other)
  Sender: FDA-Public Use
  Company Number: US-BRISTOL-MYERS SQUIBB COMPANY-16789935

PATIENT
  Age: 27 Year
  Sex: Female

DRUGS (1)
  1. ORENCIA [Suspect]
     Dosage: LAST INF:JUN2012?NO OF INF:4
     Route: 042
     Dates: start: 201204

REACTIONS (1)
  - Anaphylactic reaction [Unknown]
